FAERS Safety Report 6187927-8 (Version None)
Quarter: 2009Q2

REPORT INFORMATION
  Report Type: 
  Country: None (occurrence: None)
  Receive Date: 20090511
  Receipt Date: 20090511
  Transmission Date: 20091009
  Serious: Yes (Life-Threatening, Hospitalization)
  Sender: FDA-Public Use
  Company Number: None

PATIENT
  Age: 73 Year
  Sex: Male
  Weight: 83.9154 kg

DRUGS (1)
  1. ZESTRYL [Suspect]
     Dosage: ONE PER DAY PO
     Route: 048
     Dates: start: 20000104, end: 20040629

REACTIONS (9)
  - ASTHENIA [None]
  - BALANCE DISORDER [None]
  - DEAFNESS UNILATERAL [None]
  - DRUG HYPERSENSITIVITY [None]
  - DYSSTASIA [None]
  - HYPERTENSION [None]
  - NAUSEA [None]
  - PARTNER STRESS [None]
  - TINNITUS [None]
